FAERS Safety Report 9749796 (Version 1)
Quarter: 2013Q4

REPORT INFORMATION
  Report Type: Spontaneous
  Country: GB (occurrence: GB)
  Receive Date: 20131212
  Receipt Date: 20131212
  Transmission Date: 20140711
  Serious: Yes (Other)
  Sender: FDA-Public Use
  Company Number: GB-TEVA-449995ISR

PATIENT
  Age: 74 Year
  Sex: Female

DRUGS (7)
  1. BACLOFEN [Suspect]
     Indication: MUSCLE SPASMS
     Route: 048
     Dates: start: 20131116, end: 20131119
  2. FENTANYL [Suspect]
     Route: 048
  3. FENTANYL [Suspect]
     Route: 062
  4. DOXAZOSIN [Concomitant]
  5. CANDESARTAN [Concomitant]
  6. OMEPRAZOLE [Concomitant]
  7. ASPIRIN [Concomitant]

REACTIONS (6)
  - Somnolence [Recovering/Resolving]
  - Incoherent [Recovering/Resolving]
  - Unresponsive to stimuli [Unknown]
  - Confusional state [Unknown]
  - Disorientation [Unknown]
  - Hypersomnia [Unknown]
